FAERS Safety Report 8269315-3 (Version None)
Quarter: 2012Q2

REPORT INFORMATION
  Report Type: 
  Country: None (occurrence: None)
  Receive Date: 20120409
  Receipt Date: 20120327
  Transmission Date: 20120825
  Serious: Yes (Hospitalization)
  Sender: FDA-Public Use
  Company Number: JP-ROCHE-742464

PATIENT
  Sex: Female
  Weight: 64 kg

DRUGS (8)
  1. VOLTAREN [Concomitant]
     Dosage: PROPER ADMINISTERING
     Route: 054
  2. PEGINTERFERON ALFA-2A [Suspect]
     Dosage: DOSE REDUCED
     Route: 058
     Dates: start: 20101026, end: 20101124
  3. PEGINTERFERON ALFA-2A [Suspect]
     Dosage: DOSE DECREASED
     Route: 058
     Dates: start: 20100720, end: 20100726
  4. PEGINTERFERON ALFA-2A [Suspect]
     Dosage: DISCONTINUED
     Route: 058
     Dates: start: 20100727, end: 20100921
  5. COPEGUS [Suspect]
     Indication: HEPATITIS C
     Route: 048
     Dates: start: 20100706, end: 20100921
  6. COPEGUS [Suspect]
     Route: 048
     Dates: start: 20110322, end: 20111030
  7. PEGINTERFERON ALFA-2A [Suspect]
     Route: 058
     Dates: start: 20101130, end: 20111025
  8. PEGINTERFERON ALFA-2A [Suspect]
     Indication: HEPATITIS C
     Dosage: DOSE DECREASED
     Route: 058
     Dates: start: 20100706, end: 20100719

REACTIONS (3)
  - PLATELET COUNT DECREASED [None]
  - CHEST DISCOMFORT [None]
  - INTESTINAL OBSTRUCTION [None]
